FAERS Safety Report 6877723-8 (Version None)
Quarter: 2010Q3

REPORT INFORMATION
  Report Type: 
  Country: None (occurrence: None)
  Receive Date: 20100727
  Receipt Date: 20100621
  Transmission Date: 20110219
  Serious: No
  Sender: FDA-Public Use
  Company Number: US-ABBOTT-10P-163-0653753-00

PATIENT
  Sex: Female
  Weight: 47.67 kg

DRUGS (4)
  1. SYNTHROID [Suspect]
     Indication: HYPOTHYROIDISM
     Dates: end: 20050101
  2. SYNTHROID [Suspect]
     Dates: start: 20100101
  3. ZIAC [Concomitant]
     Indication: HYPERTENSION
  4. LEVOTHYROXINE [Concomitant]
     Indication: HYPOTHYROIDISM
     Dates: end: 20100101

REACTIONS (10)
  - AGITATION [None]
  - ASTHENIA [None]
  - BLOOD PRESSURE INCREASED [None]
  - FEELING ABNORMAL [None]
  - FEELING COLD [None]
  - HEADACHE [None]
  - NAUSEA [None]
  - PYREXIA [None]
  - THYROID FUNCTION TEST ABNORMAL [None]
  - TREMOR [None]
